FAERS Safety Report 23793736 (Version 3)
Quarter: 2024Q2

REPORT INFORMATION
  Report Type: Spontaneous
  Country: US (occurrence: US)
  Receive Date: 20240429
  Receipt Date: 20240521
  Transmission Date: 20240716
  Serious: Yes (Other)
  Sender: FDA-Public Use
  Company Number: US-TEVA-VS-3170922

PATIENT
  Age: 88 Year
  Sex: Female
  Weight: 63.5 kg

DRUGS (4)
  1. ALPRAZOLAM [Suspect]
     Active Substance: ALPRAZOLAM
     Indication: Anxiety
     Route: 065
     Dates: start: 202310
  2. ALPRAZOLAM [Suspect]
     Active Substance: ALPRAZOLAM
     Indication: Anxiety
     Route: 065
     Dates: start: 20231115
  3. ROSUVASTATIN [Concomitant]
     Active Substance: ROSUVASTATIN
     Indication: Product used for unknown indication
  4. Calming Balance [Concomitant]
     Indication: Product used for unknown indication

REACTIONS (10)
  - Withdrawal syndrome [Unknown]
  - Tinnitus [Unknown]
  - Decreased appetite [Unknown]
  - Dizziness [Unknown]
  - Dyspnoea [Unknown]
  - Weight decreased [Unknown]
  - Anxiety [Unknown]
  - Tremor [Unknown]
  - Asthenia [Unknown]
  - Product tampering [Unknown]

NARRATIVE: CASE EVENT DATE: 20231227
